FAERS Safety Report 14268880 (Version 4)
Quarter: 2018Q1

REPORT INFORMATION
  Report Type: Spontaneous
  Country: US (occurrence: US)
  Receive Date: 20171211
  Receipt Date: 20180213
  Transmission Date: 20180508
  Serious: No
  Sender: FDA-Public Use
  Company Number: US-PFIZER INC-2017524365

PATIENT
  Age: 64 Year
  Sex: Male
  Weight: 75 kg

DRUGS (11)
  1. ATROPINE SULFATE/DIPHENOXYLATE HYDROCHLORIDE [Suspect]
     Active Substance: ATROPINE SULFATE\DIPHENOXYLATE HYDROCHLORIDE
     Indication: CONSTIPATION
     Dosage: 2.5 MG, 2X/DAY, ONE PILL, AS NEEDED
     Route: 048
     Dates: start: 201705, end: 20171124
  2. ELIQUIS [Concomitant]
     Active Substance: APIXABAN
     Indication: THROMBOSIS PROPHYLAXIS
     Dosage: 5 MG, 2X/DAY, ONE PILL
     Route: 048
     Dates: start: 201709
  3. ELIQUIS [Concomitant]
     Active Substance: APIXABAN
     Indication: BLOOD PRESSURE MEASUREMENT
     Dosage: 5 MG, 2X/DAY
     Route: 048
     Dates: start: 201710
  4. JANUVIA [Concomitant]
     Active Substance: SITAGLIPTIN PHOSPHATE
     Indication: DIABETES MELLITUS
     Dosage: 100 MG, 1X/DAY
     Route: 048
     Dates: start: 201510
  5. ENTRESTO [Concomitant]
     Active Substance: SACUBITRIL\VALSARTAN
     Indication: HYPERTENSION
     Dosage: 1 DF, 2X/DAY
     Route: 048
     Dates: start: 201602
  6. FUROSEMIDE. [Concomitant]
     Active Substance: FUROSEMIDE
     Indication: HYPERTENSION
     Dosage: 60 MG, 1X/DAY (20 MG THREE PILLS)
     Route: 048
     Dates: start: 201602
  7. ATROPINE SULFATE/DIPHENOXYLATE HYDROCHLORIDE [Suspect]
     Active Substance: ATROPINE SULFATE\DIPHENOXYLATE HYDROCHLORIDE
     Dosage: 2.5 MG, 3X/DAY, ONE TABLET, AS NEEDED
     Route: 048
  8. CARVEDILOL. [Concomitant]
     Active Substance: CARVEDILOL
     Dosage: 12.5 MG, 2X/DAY, ONE PILL
     Route: 048
     Dates: start: 201709
  9. ATROPINE SULFATE/DIPHENOXYLATE HYDROCHLORIDE [Suspect]
     Active Substance: ATROPINE SULFATE\DIPHENOXYLATE HYDROCHLORIDE
     Indication: DIARRHOEA
     Dosage: 2.5 MG, AS NEEDED, USUALLY 1-2 IN MORNING AND EVENING
     Route: 048
     Dates: start: 201703, end: 201711
  10. CARVEDILOL. [Concomitant]
     Active Substance: CARVEDILOL
     Indication: HYPERTENSION
     Dosage: 12.5 MG, 2X/DAY
     Route: 048
     Dates: start: 201602
  11. LOMOTIL [Suspect]
     Active Substance: ATROPINE SULFATE\DIPHENOXYLATE HYDROCHLORIDE
     Dosage: UNK

REACTIONS (7)
  - Constipation [Recovering/Resolving]
  - Diarrhoea [Recovering/Resolving]
  - Feeding disorder [Unknown]
  - Drug ineffective [Unknown]
  - Abdominal pain upper [Unknown]
  - Product quality issue [Unknown]
  - Malaise [Unknown]

NARRATIVE: CASE EVENT DATE: 2017
